FAERS Safety Report 15599360 (Version 1)
Quarter: 2018Q4

REPORT INFORMATION
  Report Type: Spontaneous
  Country: PT (occurrence: PT)
  Receive Date: 20181108
  Receipt Date: 20181108
  Transmission Date: 20190205
  Serious: Yes (Hospitalization)
  Sender: FDA-Public Use
  Company Number: PT-BAYER-2018-204822

PATIENT
  Age: 84 Year
  Sex: Male

DRUGS (3)
  1. ACETYLSALICYLIC ACID({=100 MG) [Suspect]
     Active Substance: ASPIRIN
     Dosage: UNK
  2. LEVODOPA [Concomitant]
     Active Substance: LEVODOPA
     Dosage: UNK
  3. CARBIDOPA. [Concomitant]
     Active Substance: CARBIDOPA
     Dosage: UNK

REACTIONS (7)
  - Dislocation of vertebra [None]
  - Nasal injury [None]
  - Cervical vertebral fracture [None]
  - Traumatic haemorrhage [None]
  - Cardiac arrest [None]
  - Fall [None]
  - Obstructive airways disorder [None]
